FAERS Safety Report 12765466 (Version 1)
Quarter: 2016Q3

REPORT INFORMATION
  Report Type: Spontaneous
  Country: US (occurrence: US)
  Receive Date: 20160915
  Receipt Date: 20160915
  Transmission Date: 20161109
  Serious: No
  Sender: FDA-Public Use
  Company Number: None

PATIENT
  Age: 67 Year
  Sex: Female

DRUGS (1)
  1. COPAXONE [Suspect]
     Active Substance: GLATIRAMER ACETATE
     Indication: MULTIPLE SCLEROSIS
     Route: 058
     Dates: start: 20140305

REACTIONS (5)
  - Dysgeusia [None]
  - Pruritus [None]
  - Balance disorder [None]
  - Vision blurred [None]
  - No reaction on previous exposure to drug [None]

NARRATIVE: CASE EVENT DATE: 20160722
